FAERS Safety Report 10166281 (Version 2)
Quarter: 2014Q2

REPORT INFORMATION
  Report Type: Report from Study
  Country: US (occurrence: US)
  Receive Date: 20140512
  Receipt Date: 20140623
  Transmission Date: 20141212
  Serious: Yes (Other)
  Sender: FDA-Public Use
  Company Number: US-BRISTOL-MYERS SQUIBB COMPANY-20702908

PATIENT
  Age: 54 Year
  Sex: Male
  Weight: 75.2 kg

DRUGS (1)
  1. IPILIMUMAB [Suspect]
     Indication: MALIGNANT MELANOMA
     Dosage: TOTAL DOSE:948MG
     Route: 042
     Dates: start: 20131216, end: 20140217

REACTIONS (2)
  - Hypercalcaemia [Recovered/Resolved]
  - Sarcoidosis [Recovering/Resolving]
